FAERS Safety Report 17559886 (Version 1)
Quarter: 2020Q1

REPORT INFORMATION
  Report Type: Spontaneous
  Country: US (occurrence: US)
  Receive Date: 20200319
  Receipt Date: 20200319
  Transmission Date: 20200409
  Serious: No
  Sender: FDA-Public Use
  Company Number: US-MYLANLABS-2020M1026354

PATIENT
  Sex: Male
  Weight: 111 kg

DRUGS (1)
  1. VALSARTAN TABLETS, USP [Suspect]
     Active Substance: VALSARTAN
     Indication: HYPERTENSION
     Dosage: 40 MILLIGRAM, QD, DAILY
     Route: 048
     Dates: start: 202001

REACTIONS (2)
  - Muscular weakness [Recovered/Resolved]
  - Product substitution issue [Unknown]
